FAERS Safety Report 5077892-9 (Version None)
Quarter: 2006Q3

REPORT INFORMATION
  Report Type: 
  Country: None (occurrence: None)
  Receive Date: 20060720
  Receipt Date: 20050809
  Transmission Date: 20061208
  Serious: Yes (Hospitalization)
  Sender: FDA-Public Use
  Company Number: 05GER0164

PATIENT
  Age: 70 Year
  Sex: Female

DRUGS (3)
  1. AGGRASTAT [Suspect]
     Indication: MYOCARDIAL INFARCTION
     Dosage: 9 ML/HR
     Dates: start: 20050707, end: 20050707
  2. ASPIRIN [Concomitant]
  3. HEPARIN [Concomitant]

REACTIONS (2)
  - DRUG INEFFECTIVE [None]
  - HAEMORRHAGE [None]
